FAERS Safety Report 5116746-6 (Version None)
Quarter: 2006Q3

REPORT INFORMATION
  Report Type: 
  Country: None (occurrence: None)
  Receive Date: 20060928
  Receipt Date: 20060918
  Transmission Date: 20061208
  Serious: Yes (Hospitalization)
  Sender: FDA-Public Use
  Company Number: US-KINGPHARMUSA00001-K200601179

PATIENT
  Age: 75 Year
  Sex: Male

DRUGS (29)
  1. ALTACE [Suspect]
     Indication: CARDIAC FAILURE
     Dosage: 2.5 MG, QD
     Route: 048
     Dates: start: 20060626, end: 20060630
  2. ALTACE [Suspect]
     Dosage: 5 MG, QD
     Route: 048
     Dates: start: 20060701, end: 20060806
  3. ESCITALOPRAM OXALATE [Concomitant]
     Indication: DEPRESSION
     Dosage: 10 MG, UNK
     Route: 048
  4. INSULATARD NPH HUMAN [Concomitant]
     Indication: DIABETES MELLITUS
     Dosage: 44 IU, UNK
     Route: 058
     Dates: end: 20060819
  5. METOLAZONE [Suspect]
     Indication: CARDIAC FAILURE
     Dosage: 5 MG, QD
     Route: 048
     Dates: start: 20060227, end: 20060304
  6. METOLAZONE [Suspect]
     Dosage: 2.5 MG, QD
     Route: 048
     Dates: start: 20060407, end: 20060410
  7. METOLAZONE [Suspect]
     Dosage: 2.5 MG, QD
     Route: 048
     Dates: start: 20060628, end: 20060630
  8. METOLAZONE [Suspect]
     Dosage: 2.5 MG, QD
     Route: 048
     Dates: start: 20060718, end: 20060720
  9. ROSUVASTATIN OR PLACEBO [Suspect]
     Indication: CARDIAC FAILURE CHRONIC
     Route: 048
     Dates: start: 20040707
  10. SELO-ZOK [Concomitant]
     Indication: ANGINA PECTORIS
     Dosage: 200 MG, UNK
     Route: 048
  11. ASPIRIN [Concomitant]
     Indication: CORONARY ARTERY DISEASE
     Dosage: 75 MG, UNK
     Route: 048
  12. IMDUR [Concomitant]
     Indication: ANGINA PECTORIS
     Dosage: 60 MG, UNK
     Route: 048
  13. SPIRIX [Concomitant]
     Indication: CARDIAC FAILURE
     Dosage: 25 MG, UNK
     Route: 048
     Dates: start: 20040611
  14. ALLOPUR [Concomitant]
     Indication: PROPHYLAXIS
     Dosage: 100 MG, UNK
     Route: 048
     Dates: start: 20041103
  15. NITROGLYCERIN [Concomitant]
     Indication: ANGINA PECTORIS
     Route: 060
     Dates: start: 20051006
  16. BURINEX [Concomitant]
     Indication: CARDIAC FAILURE
     Dosage: 10 MG, UNK
     Route: 048
     Dates: start: 20040611, end: 20040818
  17. BURINEX [Concomitant]
     Dosage: 7.5 MG, UNK
     Route: 048
     Dates: start: 20040819, end: 20051228
  18. BURINEX [Concomitant]
     Route: 042
     Dates: start: 20051229, end: 20060103
  19. BURINEX [Concomitant]
     Route: 048
     Dates: start: 20060103, end: 20060222
  20. BURINEX [Concomitant]
     Route: 042
     Dates: start: 20060302, end: 20060317
  21. BURINEX [Concomitant]
     Route: 048
     Dates: start: 20060317, end: 20060406
  22. BURINEX [Concomitant]
     Route: 042
     Dates: start: 20060406, end: 20060410
  23. BURINEX [Concomitant]
     Route: 048
     Dates: start: 20060411, end: 20060624
  24. BURINEX [Concomitant]
     Dosage: 28 MG, UNK
     Route: 042
     Dates: start: 20060625, end: 20060630
  25. BURINEX [Concomitant]
     Dosage: 28 MG, UNK
     Route: 048
     Dates: start: 20060701
  26. REMERON [Concomitant]
     Indication: DEPRESSION
     Dosage: 60 MG, UNK
     Route: 048
     Dates: start: 20051001, end: 20060628
  27. REMERON [Concomitant]
     Dosage: 30 MG, UNK
     Route: 048
     Dates: start: 20060629
  28. BRONKYL [Concomitant]
     Indication: COUGH
     Dosage: 600 MG, UNK
     Route: 048
     Dates: start: 20051101
  29. INSULIN HUMAN [Concomitant]
     Indication: DIABETES MELLITUS
     Dosage: 40 U, UNK
     Route: 058
     Dates: start: 20060224, end: 20060821

REACTIONS (6)
  - DEHYDRATION [None]
  - DIARRHOEA [None]
  - ENTERITIS [None]
  - FATIGUE [None]
  - RENAL FAILURE [None]
  - TREMOR [None]
